FAERS Safety Report 9644559 (Version 2)
Quarter: 2014Q1

REPORT INFORMATION
  Report Type: Spontaneous
  Country: GB (occurrence: GB)
  Receive Date: 20131025
  Receipt Date: 20140210
  Transmission Date: 20141002
  Serious: Yes (Life-Threatening, Hospitalization, Disabling)
  Sender: FDA-Public Use
  Company Number: GB-JNJFOC-20131012604

PATIENT
  Age: 66 Year
  Sex: Female
  Weight: 79.2 kg

DRUGS (3)
  1. SIMPONI [Suspect]
     Indication: RHEUMATOID ARTHRITIS
     Route: 058
     Dates: start: 20130912
  2. HYDROXYCHLOROQUINE [Concomitant]
     Route: 065
     Dates: start: 20120307
  3. SULFASALAZINE [Concomitant]
     Route: 065
     Dates: start: 200712

REACTIONS (2)
  - Embolism [Recovered/Resolved]
  - Deep vein thrombosis [Recovered/Resolved]
